FAERS Safety Report 4955697-4 (Version None)
Quarter: 2006Q1

REPORT INFORMATION
  Report Type: 
  Country: None (occurrence: None)
  Receive Date: 20060328
  Receipt Date: 20060316
  Transmission Date: 20060701
  Serious: Yes (Other)
  Sender: FDA-Public Use
  Company Number: US-ROCHE-440969

PATIENT
  Age: 49 Year
  Sex: Male
  Weight: 63 kg

DRUGS (3)
  1. PEGASYS [Suspect]
     Indication: HEPATITIS C
     Dosage: STRENGTH REPORTED AS 180 MCG/0.5 ML.
     Route: 058
     Dates: start: 20060210, end: 20060315
  2. COPEGUS [Suspect]
     Indication: HEPATITIS C
     Dosage: 2 AM AND 3 PM.
     Route: 048
     Dates: start: 20060210, end: 20060305
  3. NORTRIPTYLINE HCL [Concomitant]
     Indication: DEPRESSION
     Dosage: 1-2 CAPSULES AS NEEDED, AT BEDTIME.
     Route: 048
     Dates: start: 19870615

REACTIONS (1)
  - GRAND MAL CONVULSION [None]
